FAERS Safety Report 5355988-1 (Version None)
Quarter: 2007Q2

REPORT INFORMATION
  Report Type: 
  Country: None (occurrence: None)
  Receive Date: 20070525
  Receipt Date: 20070403
  Transmission Date: 20071010
  Serious: Yes (Hospitalization)
  Sender: FDA-Public Use
  Company Number: WAES 0701USA01815

PATIENT
  Age: 54 Year
  Sex: Female

DRUGS (3)
  1. VYTORIN [Suspect]
     Indication: HYPERLIPIDAEMIA
     Dosage: 10-20 MG/DAILY/PO
     Route: 048
     Dates: start: 20061001, end: 20070222
  2. LOTREL [Concomitant]
  3. ATENOLOL [Concomitant]

REACTIONS (1)
  - PANCREATITIS ACUTE [None]
